FAERS Safety Report 8612620-9 (Version None)
Quarter: 2012Q3

REPORT INFORMATION
  Report Type: 
  Country: None (occurrence: None)
  Receive Date: 20120822
  Receipt Date: 20110912
  Transmission Date: 20120928
  Serious: No
  Sender: FDA-Public Use
  Company Number: US-ASTRAZENECA-2011SE54968

PATIENT
  Sex: Female

DRUGS (6)
  1. NASONEX [Interacting]
  2. ALBUTEROL [Interacting]
  3. SPIRIVA [Interacting]
  4. SYMBICORT [Suspect]
     Dosage: 80/4.5 MCG, UNKNOWN FREQUENCY
     Route: 055
  5. SYMBICORT [Interacting]
     Dosage: 160/4.5 MCG, UNKNOWN FREQUENCY
     Route: 055
  6. SINGULAIR [Interacting]

REACTIONS (4)
  - DRUG INTERACTION [None]
  - MOTION SICKNESS [None]
  - NAUSEA [None]
  - DRUG INEFFECTIVE [None]
